FAERS Safety Report 15545425 (Version 1)
Quarter: 2018Q4

REPORT INFORMATION
  Report Type: Spontaneous
  Country: FR (occurrence: FR)
  Receive Date: 20181024
  Receipt Date: 20181024
  Transmission Date: 20190205
  Serious: Yes (Death, Hospitalization, Other)
  Sender: FDA-Public Use
  Company Number: FR-AUROBINDO-AUR-APL-2018-001012

PATIENT
  Age: 41 Year
  Sex: Male
  Weight: 55 kg

DRUGS (27)
  1. OXALIPLATIN. [Suspect]
     Active Substance: OXALIPLATIN
     Dosage: 75 MG/M2, CYCLIC, EVERY 14 DAYS ; CYCLICAL
     Route: 065
     Dates: start: 20160616
  2. SUTENT [Suspect]
     Active Substance: SUNITINIB MALATE
     Indication: PANCREATIC NEUROENDOCRINE TUMOUR
     Dosage: 12.5 MG, DAILY
     Route: 065
     Dates: start: 2015, end: 2015
  3. SOMATULINE                         /01330101/ [Suspect]
     Active Substance: LANREOTIDE ACETATE
     Indication: PANCREATIC NEUROENDOCRINE TUMOUR
     Dosage: 120 MG, CYCLIC, EVERY 28 DAYS ; CYCLICAL
     Route: 065
     Dates: start: 20160810, end: 20160907
  4. OXALIPLATIN. [Suspect]
     Active Substance: OXALIPLATIN
     Indication: PANCREATIC NEUROENDOCRINE TUMOUR
     Dosage: 75 MG/M2 EVERY14 DAYS ; CYCLICAL
     Dates: start: 20151105
  5. OXALIPLATIN. [Suspect]
     Active Substance: OXALIPLATIN
     Dosage: 75 MG/M2, Q2W
     Route: 065
     Dates: start: 20160729
  6. SUTENT [Suspect]
     Active Substance: SUNITINIB MALATE
     Dosage: 25 MG, ONCE DAILY CONTINUOUS
     Route: 065
     Dates: start: 20150919, end: 20151023
  7. METEOXANE                          /01772101/ [Concomitant]
     Indication: ABDOMINAL DISTENSION
     Dosage: UNK
     Route: 048
     Dates: start: 20160729, end: 2016
  8. OXYNORM [Concomitant]
     Active Substance: OXYCODONE HYDROCHLORIDE
     Dosage: UNK ()
     Route: 048
     Dates: start: 201510
  9. SOLU-MEDROL [Concomitant]
     Active Substance: METHYLPREDNISOLONE SODIUM SUCCINATE
     Dosage: UNK ()
     Route: 048
     Dates: start: 20160920, end: 20160920
  10. OXALIPLATIN. [Suspect]
     Active Substance: OXALIPLATIN
     Dosage: 75 MG/M2 EVERY14 DAYS ; CYCLICAL
     Route: 065
     Dates: start: 20151105, end: 20160218
  11. FLUOROURACIL. [Suspect]
     Active Substance: FLUOROURACIL
     Indication: PANCREATIC NEUROENDOCRINE TUMOUR
     Dosage: 400 MILLIGRAM/SQ. METER,SINGLE  IN TOTAL
     Route: 065
     Dates: start: 20160914
  12. ELVORINE [Suspect]
     Active Substance: LEUCOVORIN CALCIUM
     Indication: PANCREATIC NEUROENDOCRINE TUMOUR
     Dosage: 200 MG/M2, UNK
     Route: 065
     Dates: start: 20160914
  13. DUROGESIC [Concomitant]
     Active Substance: FENTANYL
     Dosage: UNK ()
     Route: 003
     Dates: start: 201510
  14. SUTENT [Suspect]
     Active Substance: SUNITINIB MALATE
     Dosage: 37.5 MG, DAILY
     Route: 065
     Dates: start: 20150827, end: 20150831
  15. OXYNORM [Concomitant]
     Active Substance: OXYCODONE HYDROCHLORIDE
     Indication: ABDOMINAL PAIN
     Dosage: UNK ()
     Route: 048
     Dates: start: 20160916, end: 20161004
  16. SOLU-MEDROL [Concomitant]
     Active Substance: METHYLPREDNISOLONE SODIUM SUCCINATE
     Indication: ABDOMINAL PAIN
     Dosage: UNK ()
     Route: 048
     Dates: start: 20161004, end: 20161005
  17. FLUOROURACIL. [Suspect]
     Active Substance: FLUOROURACIL
     Dosage: 400 MG/M2, SINGLE ; IN TOTAL
     Route: 065
     Dates: start: 20160914, end: 20160914
  18. TARDYFERON [Concomitant]
     Active Substance: FERROUS SULFATE
     Indication: IRON DEFICIENCY
     Dosage: UNK ()
     Route: 048
     Dates: start: 20160630, end: 20160729
  19. INNOHEP [Concomitant]
     Active Substance: TINZAPARIN SODIUM
     Indication: PROPHYLAXIS
     Dosage: UNK ()
     Route: 058
     Dates: start: 20160915
  20. DUROGESIC [Concomitant]
     Active Substance: FENTANYL
     Indication: ABDOMINAL PAIN
     Dosage: UNK ()
     Route: 003
     Dates: start: 20160922, end: 20161004
  21. MORPHIN                            /00036302/ [Concomitant]
     Active Substance: MORPHINE SULFATE
     Indication: ABDOMINAL PAIN
     Dosage: UNK
     Route: 042
     Dates: start: 20161004, end: 20161007
  22. GEMCITABINE [Suspect]
     Active Substance: GEMCITABINE\GEMCITABINE HYDROCHLORIDE
     Indication: PANCREATIC NEUROENDOCRINE TUMOUR
     Dosage: 500 MG/M2 EVERY 14 DAYS ; CYCLICAL
     Route: 065
     Dates: start: 20151105, end: 20160218
  23. GEMCITABINE [Suspect]
     Active Substance: GEMCITABINE\GEMCITABINE HYDROCHLORIDE
     Dosage: 500 MG/M2, CYCLIC, EVERY 14 DAYS ; CYCLICAL
     Route: 065
     Dates: start: 20160616, end: 20160729
  24. IRINOTECAN [Suspect]
     Active Substance: IRINOTECAN
     Indication: PANCREATIC NEUROENDOCRINE TUMOUR
     Dosage: 180 MG/M2, SINGLE ; IN TOTAL
     Route: 065
     Dates: start: 20160914
  25. INIPOMP [Concomitant]
     Active Substance: PANTOPRAZOLE SODIUM
     Indication: REFLUX GASTRITIS
     Dosage: UNK ()
     Route: 048
     Dates: start: 20160616, end: 2016
  26. DEBRIDAT                           /00465201/ [Concomitant]
     Active Substance: TRIMEBUTINE MALEATE
     Indication: ABDOMINAL DISTENSION
     Dosage: UNK
     Route: 048
     Dates: start: 20160902, end: 2016
  27. SOLUPRED                           /00016201/ [Concomitant]
     Active Substance: PREDNISOLONE
     Indication: ABDOMINAL PAIN
     Dosage: UNK
     Route: 048
     Dates: start: 20160920, end: 20160923

REACTIONS (14)
  - Abdominal pain [Not Recovered/Not Resolved]
  - Dyspnoea [Not Recovered/Not Resolved]
  - Neutropenia [Unknown]
  - Psychomotor retardation [Recovered/Resolved]
  - Pain [Recovered/Resolved]
  - Dysaesthesia [Recovered/Resolved]
  - Hypoaesthesia [Not Recovered/Not Resolved]
  - Psychomotor skills impaired [Recovered/Resolved]
  - Hepatic pain [Recovered/Resolved]
  - Asthenia [Recovered/Resolved]
  - Decreased appetite [Recovered/Resolved]
  - Neoplasm progression [Fatal]
  - Tumour necrosis [Recovered/Resolved]
  - General physical health deterioration [Recovered/Resolved]

NARRATIVE: CASE EVENT DATE: 20150829
